FAERS Safety Report 7519197-X (Version None)
Quarter: 2011Q2

REPORT INFORMATION
  Report Type: 
  Country: None (occurrence: None)
  Receive Date: 20110602
  Receipt Date: 20110407
  Transmission Date: 20111010
  Serious: No
  Sender: FDA-Public Use
  Company Number: US-BRISTOL-MYERS SQUIBB COMPANY-15660046

PATIENT
  Sex: Female

DRUGS (1)
  1. KOMBIGLYZE XR [Suspect]
     Dosage: 1DF:5MG/2000MG DOSE REDUCED TO 2.5MG/1000MG BID

REACTIONS (2)
  - MUSCLE SPASMS [None]
  - DIARRHOEA [None]
